FAERS Safety Report 5308942-X (Version None)
Quarter: 2007Q2

REPORT INFORMATION
  Report Type: 
  Country: None (occurrence: None)
  Receive Date: 20070426
  Receipt Date: 20070416
  Transmission Date: 20071010
  Serious: Yes (Death, Other)
  Sender: FDA-Public Use
  Company Number: BR-PFIZER INC-2007023896

PATIENT
  Age: 67 Year
  Sex: Male
  Weight: 55 kg

DRUGS (6)
  1. CELEBRA [Suspect]
     Indication: MALIGNANT MELANOMA
     Route: 048
  2. MORPHINE [Suspect]
  3. DEXAMETHASONE 0.5MG TAB [Concomitant]
  4. ANTIHYPERTENSIVES [Concomitant]
  5. SELEGILINE HCL [Concomitant]
  6. PROLOPA [Concomitant]
     Route: 048

REACTIONS (4)
  - ASTHENIA [None]
  - MALIGNANT MELANOMA [None]
  - SOMNOLENCE [None]
  - WEIGHT DECREASED [None]
